FAERS Safety Report 8663200 (Version 2)
Quarter: 2014Q1

REPORT INFORMATION
  Report Type: Report from Study
  Country: MX (occurrence: MX)
  Receive Date: 20120713
  Receipt Date: 20140224
  Transmission Date: 20141002
  Serious: Yes (Death, Life-Threatening, Hospitalization, Other)
  Sender: FDA-Public Use
  Company Number: PHHO2012MX008869

PATIENT
  Age: 21 Year
  Sex: Male
  Weight: 48 kg

DRUGS (13)
  1. NEORAL [Suspect]
     Indication: RENAL TRANSPLANT
     Dosage: 50 MG, BID
     Route: 048
     Dates: start: 20120502
  2. NEORAL [Suspect]
     Dosage: 25 MG, BID
     Route: 048
     Dates: end: 20120613
  3. NEORAL [Suspect]
     Dosage: 25 MG, BID
     Route: 048
     Dates: start: 20120618, end: 20120708
  4. PREDNISONE [Suspect]
     Indication: RENAL TRANSPLANT
     Dosage: 15 MG, QD
     Route: 048
     Dates: start: 20120516, end: 20120613
  5. PREDNISONE [Suspect]
     Dosage: 15 MG, QD
     Route: 048
     Dates: end: 20120705
  6. MYFORTIC [Concomitant]
     Indication: RENAL TRANSPLANT
     Dosage: 720 MG, BID
     Route: 048
     Dates: start: 20120418, end: 20120613
  7. MYFORTIC [Concomitant]
     Dosage: 720 MG, BID
     Route: 048
     Dates: start: 20120618, end: 20120705
  8. ACYCLOVIR [Concomitant]
     Indication: PROPHYLAXIS
     Dosage: 200 MG, TID
     Route: 048
     Dates: start: 20120418
  9. BACTRIM [Concomitant]
     Indication: PROPHYLAXIS
     Dosage: 800/160MG, QD
     Route: 048
     Dates: start: 20120418
  10. NYSTATIN [Concomitant]
     Indication: PROPHYLAXIS
     Dosage: 10000 U, TID
     Route: 048
     Dates: start: 20120418
  11. METOPROLOL [Concomitant]
     Indication: HYPERTENSION
     Dosage: 100 MG, BID
     Route: 048
     Dates: start: 20120418
  12. AMLODIPINE [Concomitant]
     Indication: HYPERTENSION
     Dosage: 10 MG, QD
     Route: 048
     Dates: start: 20120418, end: 20120613
  13. LOSARTAN [Concomitant]
     Indication: HYPERTENSION
     Dosage: 50 MG, QD
     Route: 048
     Dates: start: 20120418, end: 20120613

REACTIONS (8)
  - Cytomegalovirus infection [Not Recovered/Not Resolved]
  - Respiratory failure [Fatal]
  - Acute respiratory distress syndrome [Fatal]
  - Pneumonia [Fatal]
  - Gastrointestinal haemorrhage [Recovered/Resolved]
  - Complications of transplanted kidney [Recovered/Resolved]
  - Jaundice [Recovered/Resolved]
  - Gastritis [Recovered/Resolved]
